FAERS Safety Report 21779615 (Version 1)
Quarter: 2022Q4

REPORT INFORMATION
  Report Type: Report from Study
  Country: PR (occurrence: PR)
  Receive Date: 20221226
  Receipt Date: 20221226
  Transmission Date: 20230113
  Serious: No
  Sender: FDA-Public Use
  Company Number: PR-ABBVIE-4212192

PATIENT
  Sex: Female
  Weight: 66 kg

DRUGS (5)
  1. HUMIRA [Suspect]
     Active Substance: ADALIMUMAB
     Indication: Ankylosing spondylitis
     Dosage: 40MG/0.4ML
     Route: 058
     Dates: start: 20221108
  2. MELOXICAM [Concomitant]
     Active Substance: MELOXICAM
     Indication: Product used for unknown indication
     Route: 048
  3. Covid-19 Vaccine [Concomitant]
     Indication: COVID-19 immunisation
     Dosage: THIRD DOSE
     Route: 030
  4. Covid-19 Vaccine [Concomitant]
     Indication: COVID-19 immunisation
     Dosage: FIRST DOSE
     Route: 030
  5. Covid-19 Vaccine [Concomitant]
     Indication: COVID-19 immunisation
     Dosage: SECOND DOSE
     Route: 030

REACTIONS (1)
  - Oropharyngeal pain [Recovered/Resolved]

NARRATIVE: CASE EVENT DATE: 20221121
